FAERS Safety Report 5099009-7 (Version None)
Quarter: 2006Q3

REPORT INFORMATION
  Report Type: 
  Country: None (occurrence: None)
  Receive Date: 20060731
  Receipt Date: 20060503
  Transmission Date: 20061208
  Serious: Yes (Other)
  Sender: FDA-Public Use
  Company Number: 224711

PATIENT
  Age: 46 Year
  Sex: Female

DRUGS (4)
  1. HERCEPTIN [Suspect]
     Indication: BREAST CANCER
     Dates: start: 20051101
  2. ADRIAMYCIN PFS [Concomitant]
  3. CHEMOTHERAPY NOS (ANTINEOPLASTIC AGENT NOS) [Concomitant]
  4. RADIATION (RADIATION THERAPY) [Concomitant]

REACTIONS (1)
  - EJECTION FRACTION DECREASED [None]
